FAERS Safety Report 11716468 (Version 2)
Quarter: 2015Q4

REPORT INFORMATION
  Report Type: Spontaneous
  Country: US (occurrence: US)
  Receive Date: 20151104
  Receipt Date: 20151110
  Transmission Date: 20160304
  Serious: No
  Sender: FDA-Public Use
  Company Number: US-ELI_LILLY_AND_COMPANY-US201105001398

PATIENT
  Age: 63 Year
  Sex: Female

DRUGS (6)
  1. ENBREL [Concomitant]
     Active Substance: ETANERCEPT
     Dosage: UNK
  2. FORTEO [Suspect]
     Active Substance: TERIPARATIDE
     Dosage: 20 UG, QD
     Route: 065
  3. FORTEO [Suspect]
     Active Substance: TERIPARATIDE
     Dosage: 20 UG, QD
     Route: 065
  4. FORTEO [Suspect]
     Active Substance: TERIPARATIDE
     Indication: OSTEOPOROSIS
     Dosage: 20 UG, QD
     Route: 065
     Dates: start: 201008
  5. FORTEO [Suspect]
     Active Substance: TERIPARATIDE
     Dosage: 20 UG, QD
     Route: 065
  6. FORTEO [Suspect]
     Active Substance: TERIPARATIDE
     Dosage: 20 UG, QD
     Route: 065

REACTIONS (12)
  - Gastric operation [Unknown]
  - Movement disorder [Unknown]
  - Injection site irritation [Unknown]
  - Limb discomfort [Unknown]
  - Injection site pain [Unknown]
  - Gastric disorder [Unknown]
  - Inflammation [Not Recovered/Not Resolved]
  - Injection site bruising [Unknown]
  - Nasopharyngitis [Unknown]
  - Joint swelling [Unknown]
  - Chest pain [Unknown]
  - Local swelling [Unknown]

NARRATIVE: CASE EVENT DATE: 20120612
